FAERS Safety Report 4830969-2 (Version None)
Quarter: 2005Q4

REPORT INFORMATION
  Report Type: 
  Country: None (occurrence: None)
  Receive Date: 20051114
  Receipt Date: 20051101
  Transmission Date: 20060501
  Serious: Yes (Other)
  Sender: FDA-Public Use
  Company Number: HQWYE692512MAY05

PATIENT
  Age: 59 Year
  Sex: Female

DRUGS (37)
  1. RAPAMUNE [Suspect]
     Indication: PROPHYLAXIS AGAINST TRANSPLANT REJECTION
     Dosage: SEE IMAGE
     Route: 048
     Dates: start: 20050331, end: 20050331
  2. RAPAMUNE [Suspect]
     Indication: PROPHYLAXIS AGAINST TRANSPLANT REJECTION
     Dosage: SEE IMAGE
     Route: 048
     Dates: start: 20050401, end: 20050408
  3. RAPAMUNE [Suspect]
     Indication: PROPHYLAXIS AGAINST TRANSPLANT REJECTION
     Dosage: SEE IMAGE
     Route: 048
     Dates: start: 20050409, end: 20050419
  4. RAPAMUNE [Suspect]
     Indication: PROPHYLAXIS AGAINST TRANSPLANT REJECTION
     Dosage: SEE IMAGE
     Route: 048
     Dates: start: 20050420, end: 20050428
  5. RAPAMUNE [Suspect]
     Indication: PROPHYLAXIS AGAINST TRANSPLANT REJECTION
     Dosage: SEE IMAGE
     Route: 048
     Dates: start: 20050429, end: 20050510
  6. RAPAMUNE [Suspect]
     Indication: PROPHYLAXIS AGAINST TRANSPLANT REJECTION
     Dosage: SEE IMAGE
     Route: 048
     Dates: start: 20050511, end: 20050512
  7. RAPAMUNE [Suspect]
     Indication: PROPHYLAXIS AGAINST TRANSPLANT REJECTION
     Dosage: SEE IMAGE
     Route: 048
     Dates: start: 20050520, end: 20050608
  8. RAPAMUNE [Suspect]
     Indication: PROPHYLAXIS AGAINST TRANSPLANT REJECTION
     Dosage: SEE IMAGE
     Route: 048
     Dates: start: 20050609
  9. SODIUM BICARBONATE IN PLASTIC CONTAINER [Concomitant]
  10. CALCIUM CARBONATE (CALCIUM CARBONATE) [Concomitant]
  11. OMEPRAZOLE [Concomitant]
  12. SIMVASTATIN [Concomitant]
  13. TIROXINA (LEVOTHYROXINE SODIUM) [Concomitant]
  14. CIPROFLOXACIN [Concomitant]
  15. AMLODIPINE [Concomitant]
  16. CYCLOSPORINE [Concomitant]
  17. CYCLOSPORINE [Concomitant]
  18. CYCLOSPORINE [Concomitant]
  19. CYCLOSPORINE [Concomitant]
  20. CYCLOSPORINE [Concomitant]
  21. PREDNISONE [Concomitant]
  22. PREDNISONE [Concomitant]
  23. PREDNISONE [Concomitant]
  24. PREDNISONE [Concomitant]
  25. PREDNISONE [Concomitant]
  26. PREDNISONE [Concomitant]
  27. PREDNISONE [Concomitant]
  28. PREDNISONE [Concomitant]
  29. PREDNISONE [Concomitant]
  30. PREDNISONE [Concomitant]
  31. PREDNISONE [Concomitant]
  32. PREDNISONE [Concomitant]
  33. BACTRIM [Concomitant]
  34. ERYTHROPOIETIN (ERYTHROPOIETIN) [Concomitant]
  35. PHENOBARBITAL TAB [Concomitant]
  36. FUROSEMIDE [Concomitant]
  37. FUROSEMIDE [Concomitant]

REACTIONS (2)
  - DRUG INEFFECTIVE [None]
  - KIDNEY TRANSPLANT REJECTION [None]
